FAERS Safety Report 21278312 (Version 1)
Quarter: 2022Q3

REPORT INFORMATION
  Report Type: Spontaneous
  Country: US (occurrence: US)
  Receive Date: 20220831
  Receipt Date: 20220831
  Transmission Date: 20221027
  Serious: No
  Sender: FDA-Public Use
  Company Number: US-ABBVIE-22K-163-4241030-00

PATIENT
  Age: 51 Year
  Sex: Female
  Weight: 79.450 kg

DRUGS (1)
  1. HUMIRA [Suspect]
     Active Substance: ADALIMUMAB
     Indication: Colitis ulcerative
     Route: 058
     Dates: start: 202111

REACTIONS (10)
  - Dizziness [Not Recovered/Not Resolved]
  - Injection site hypoaesthesia [Recovered/Resolved]
  - Asthenia [Not Recovered/Not Resolved]
  - Malaise [Unknown]
  - Injection site paraesthesia [Recovered/Resolved]
  - Nasal congestion [Recovering/Resolving]
  - Tonsillar hypertrophy [Not Recovered/Not Resolved]
  - Cough [Recovering/Resolving]
  - Headache [Recovered/Resolved]
  - Diarrhoea [Not Recovered/Not Resolved]

NARRATIVE: CASE EVENT DATE: 20220115
